FAERS Safety Report 5001780-7 (Version None)
Quarter: 2006Q2

REPORT INFORMATION
  Report Type: 
  Country: None (occurrence: None)
  Receive Date: 20060512
  Receipt Date: 20060512
  Transmission Date: 20061013
  Serious: Yes (Other)
  Sender: FDA-Public Use
  Company Number: None

PATIENT
  Sex: Female
  Weight: 73.4827 kg

DRUGS (1)
  1. TAMOXIFEN 10 MG ASTRA-ZENECA [Suspect]
     Indication: BREAST CANCER
     Dosage: 20 MG QD PO
     Route: 048
     Dates: start: 19990204, end: 20010611

REACTIONS (3)
  - CARCINOID TUMOUR [None]
  - NEOPLASM MALIGNANT [None]
  - NEUROENDOCRINE CARCINOMA [None]
